FAERS Safety Report 6157038-6 (Version None)
Quarter: 2009Q2

REPORT INFORMATION
  Report Type: 
  Country: None (occurrence: None)
  Receive Date: 20090416
  Receipt Date: 20090409
  Transmission Date: 20091009
  Serious: Yes (Hospitalization)
  Sender: FDA-Public Use
  Company Number: UA-AVENTIS-200913718GDDC

PATIENT
  Age: 59 Year
  Sex: Male
  Weight: 101 kg

DRUGS (3)
  1. LANTUS [Suspect]
     Route: 058
     Dates: start: 20070302
  2. OPTIPEN (INSULIN PUMP) [Suspect]
     Dates: start: 20070302
  3. INSULIN ASPART [Concomitant]
     Route: 058
     Dates: start: 20090302

REACTIONS (1)
  - PROSTATE CANCER [None]
